FAERS Safety Report 19928133 (Version 1)
Quarter: 2021Q4

REPORT INFORMATION
  Report Type: Spontaneous
  Country: US (occurrence: US)
  Receive Date: 20211006
  Receipt Date: 20211006
  Transmission Date: 20220303
  Serious: No
  Sender: FDA-Public Use
  Company Number: None

PATIENT
  Sex: Female
  Weight: 58.5 kg

DRUGS (20)
  1. CAPECITABINE [Suspect]
     Active Substance: CAPECITABINE
     Indication: Breast cancer
     Dosage: ?          OTHER FREQUENCY:1500 QAM,1000 QPM;
     Route: 048
  2. ALPRAZOLAM [Concomitant]
     Active Substance: ALPRAZOLAM
  3. ASCORBIC ACID [Concomitant]
     Active Substance: ASCORBIC ACID
  4. CINNAMON\HERBALS [Concomitant]
     Active Substance: CINNAMON\HERBALS
  5. CALCIUM CARBONATE [Concomitant]
     Active Substance: CALCIUM CARBONATE
  6. VITAMIN B12 [Concomitant]
     Active Substance: CYANOCOBALAMIN
  7. GARLIC OIL [Concomitant]
     Active Substance: GARLIC OIL
  8. GINGER [Concomitant]
     Active Substance: GINGER
  9. MAGNESIUM OXIDE [Concomitant]
     Active Substance: MAGNESIUM OXIDE
  10. GENTEAL TEARS (MILD) [Concomitant]
     Active Substance: DEXTRAN 70\HYPROMELLOSE 2910 (4000 MPA.S)
  11. CRESTOR [Concomitant]
     Active Substance: ROSUVASTATIN CALCIUM
  12. SELENIUM [Concomitant]
     Active Substance: SELENIUM
  13. GLUCOTROL [Concomitant]
     Active Substance: GLIPIZIDE
  14. CLARITIN [Concomitant]
     Active Substance: LORATADINE
  15. FISH OIL [Concomitant]
     Active Substance: FISH OIL
  16. IBUPROFEN [Concomitant]
     Active Substance: IBUPROFEN
  17. CYCLOBENZAPRINE [Concomitant]
     Active Substance: CYCLOBENZAPRINE
  18. CHOLESTYRAMINE [Concomitant]
     Active Substance: CHOLESTYRAMINE
  19. ZINC CHELATED [Concomitant]
  20. ALEVE [Concomitant]
     Active Substance: NAPROXEN SODIUM

REACTIONS (1)
  - Disease progression [None]
